FAERS Safety Report 4625990-3 (Version None)
Quarter: 2005Q2

REPORT INFORMATION
  Report Type: 
  Country: None (occurrence: None)
  Receive Date: 20050404
  Receipt Date: 20050324
  Transmission Date: 20051028
  Serious: Yes (Death, Hospitalization)
  Sender: FDA-Public Use
  Company Number: US-JNJFOC-20050204201

PATIENT
  Age: 2 Year
  Sex: Male

DRUGS (4)
  1. TOPAMAX [Suspect]
  2. TOPAMAX [Suspect]
  3. TOPAMAX [Suspect]
     Dosage: 45MG TWICE DAILY UP TO 150MG TWICE DAILY
  4. TOPAMAX [Suspect]
     Indication: EPILEPSY

REACTIONS (5)
  - CONVULSION [None]
  - DRUG TOXICITY [None]
  - FEBRILE CONVULSION [None]
  - HEPATOMEGALY [None]
  - THERAPEUTIC RESPONSE DECREASED [None]
